FAERS Safety Report 23799901 (Version 2)
Quarter: 2024Q3

REPORT INFORMATION
  Report Type: Spontaneous
  Country: US (occurrence: US)
  Receive Date: 20240430
  Receipt Date: 20240710
  Transmission Date: 20241017
  Serious: No
  Sender: NEUROCRINE BIOSCIENCES
  Company Number: US-NEUROCRINE BIOSCIENCES INC.-2024NBI04025

PATIENT
  Age: 36 Year
  Sex: Female

DRUGS (5)
  1. INGREZZA [Suspect]
     Active Substance: VALBENAZINE
     Indication: Tardive dyskinesia
     Dosage: 40 MILLIGRAM
     Route: 065
     Dates: start: 20240330, end: 20240422
  2. CLONIDINE [Concomitant]
     Active Substance: CLONIDINE
     Indication: Psychomotor hyperactivity
     Dosage: 0.1 MILLIGRAM
     Route: 048
  3. ABILIFY [Concomitant]
     Active Substance: ARIPIPRAZOLE
     Indication: Affective disorder
     Dosage: 2 MILLIGRAM
     Route: 048
  4. PROZAC [Concomitant]
     Active Substance: FLUOXETINE HYDROCHLORIDE
     Indication: Affective disorder
     Dosage: 40 MILLIGRAM
     Route: 048
  5. PROPRANOLOL [Concomitant]
     Active Substance: PROPRANOLOL HYDROCHLORIDE
     Indication: Anxiety
     Dosage: 20 MILLIGRAM
     Route: 048

REACTIONS (8)
  - Agitation [Recovered/Resolved]
  - Anger [Recovered/Resolved]
  - Aggression [Recovered/Resolved]
  - Screaming [Not Recovered/Not Resolved]
  - Therapeutic response unexpected [Recovered/Resolved]
  - Vomiting [Recovered/Resolved]
  - Inappropriate affect [Recovered/Resolved]
  - Paradoxical drug reaction [Recovered/Resolved]

NARRATIVE: CASE EVENT DATE: 20240412
